FAERS Safety Report 4682899-7 (Version None)
Quarter: 2005Q2

REPORT INFORMATION
  Report Type: 
  Country: None (occurrence: None)
  Receive Date: 20050531
  Receipt Date: 20050323
  Transmission Date: 20051028
  Serious: Yes (Hospitalization)
  Sender: FDA-Public Use
  Company Number: 200512356US

PATIENT

DRUGS (2)
  1. LOVENOX [Suspect]
     Indication: DEEP VEIN THROMBOSIS
  2. LOVENOX [Suspect]
     Indication: PULMONARY EMBOLISM

REACTIONS (2)
  - ABDOMINAL HAEMATOMA [None]
  - INTERNATIONAL NORMALISED RATIO INCREASED [None]
